FAERS Safety Report 13632578 (Version 1)
Quarter: 2017Q2

REPORT INFORMATION
  Report Type: Spontaneous
  Country: US (occurrence: US)
  Receive Date: 20170531
  Receipt Date: 20170531
  Transmission Date: 20170830
  Serious: No
  Sender: FDA-Public Use
  Company Number: US-ASTELLAS-1466743

PATIENT
  Sex: Male

DRUGS (6)
  1. GILOTRIF [Concomitant]
     Active Substance: AFATINIB
  2. TARCEVA [Suspect]
     Active Substance: ERLOTINIB HYDROCHLORIDE
     Indication: PRODUCT USED FOR UNKNOWN INDICATION
     Route: 065
  3. CARBOPLATIN. [Concomitant]
     Active Substance: CARBOPLATIN
  4. ALIMTA [Concomitant]
     Active Substance: PEMETREXED DISODIUM
  5. TAXOTERE [Concomitant]
     Active Substance: DOCETAXEL
  6. CISPLATIN. [Concomitant]
     Active Substance: CISPLATIN

REACTIONS (1)
  - Drug ineffective [Unknown]
